FAERS Safety Report 5693065-0 (Version None)
Quarter: 2008Q2

REPORT INFORMATION
  Report Type: 
  Country: None (occurrence: None)
  Receive Date: 20080402
  Receipt Date: 20080402
  Transmission Date: 20081010
  Serious: Yes (Hospitalization)
  Sender: FDA-Public Use
  Company Number: None

PATIENT
  Age: 72 Year
  Sex: Male
  Weight: 73.5 kg

DRUGS (6)
  1. LONAFARNIB [Suspect]
     Indication: LUNG CANCER METASTATIC
     Dosage: 100MG PO BID
     Route: 048
     Dates: start: 20080314, end: 20080320
  2. DOCETAXEL [Suspect]
     Indication: LUNG CANCER METASTATIC
     Dosage: 30 MG/M2 IV
     Route: 042
     Dates: start: 20080313
  3. DOCETAXEL [Suspect]
     Indication: LUNG CANCER METASTATIC
     Dosage: 30 MG/M2 IV
     Route: 042
     Dates: start: 20080320
  4. PROCHLORPERAZINE [Concomitant]
  5. DEXAMETHASONE [Concomitant]
  6. PERCOCET [Concomitant]

REACTIONS (3)
  - DEHYDRATION [None]
  - DIARRHOEA [None]
  - WHITE BLOOD CELL COUNT DECREASED [None]
